FAERS Safety Report 24380600 (Version 2)
Quarter: 2024Q4

REPORT INFORMATION
  Report Type: Spontaneous
  Country: US (occurrence: US)
  Receive Date: 20240930
  Receipt Date: 20241004
  Transmission Date: 20250115
  Serious: Yes (Other)
  Sender: BRISTOL MYERS SQUIBB
  Company Number: US-BRISTOL-MYERS SQUIBB COMPANY-2024-154163

PATIENT
  Age: 64 Year
  Sex: Female

DRUGS (2)
  1. POMALYST [Suspect]
     Active Substance: POMALIDOMIDE
     Indication: Plasma cell myeloma
     Route: 048
  2. POMALYST [Suspect]
     Active Substance: POMALIDOMIDE
     Route: 048

REACTIONS (12)
  - Insurance issue [Unknown]
  - Therapy interrupted [Unknown]
  - Dyspepsia [Recovering/Resolving]
  - Blood pressure measurement [Unknown]
  - Thyroid disorder [Unknown]
  - Nausea [Unknown]
  - Peripheral swelling [Unknown]
  - Abdominal distension [Unknown]
  - Back pain [Unknown]
  - Fatigue [Recovering/Resolving]
  - Diarrhoea [Recovering/Resolving]
  - Bone disorder [Unknown]

NARRATIVE: CASE EVENT DATE: 20240901
